FAERS Safety Report 8829402 (Version 3)
Quarter: 2013Q4

REPORT INFORMATION
  Report Type: Report from Study
  Country: JP (occurrence: JP)
  Receive Date: 20121008
  Receipt Date: 20131217
  Transmission Date: 20140711
  Serious: Yes (Other)
  Sender: FDA-Public Use
  Company Number: JP-VERTEX PHARMACEUTICAL INC.-2012-022245

PATIENT
  Age: 63 Year
  Sex: Female

DRUGS (11)
  1. VX-950 (TELAPREVIR) [Suspect]
     Indication: CHRONIC HEPATITIS C
     Dosage: 2250 MG, QD
     Route: 048
     Dates: start: 20120611, end: 20120716
  2. VX-950 (TELAPREVIR) [Suspect]
     Dosage: 1500 MG, QD
     Route: 048
     Dates: start: 20120717, end: 20120805
  3. VX-950 (TELAPREVIR) [Suspect]
     Dosage: 1000 MG, QD
     Route: 048
     Dates: start: 20120806, end: 20120812
  4. VX-950 (TELAPREVIR) [Suspect]
     Dosage: 750 MG, QD
     Route: 048
     Dates: start: 20120813, end: 20120901
  5. RIBAVIRIN [Suspect]
     Indication: CHRONIC HEPATITIS C
     Dosage: 600 MG, QD
     Route: 048
     Dates: start: 20120611, end: 20120708
  6. RIBAVIRIN [Suspect]
     Dosage: 400 MG, QD
     Route: 048
     Dates: start: 20120709, end: 20120716
  7. RIBAVIRIN [Suspect]
     Dosage: 200 MG, QD
     Route: 048
     Dates: start: 20120717, end: 20121104
  8. RIBAVIRIN [Suspect]
     Dosage: 400 MG, QD
     Route: 048
     Dates: start: 20121105, end: 20121126
  9. PEGINTRON [Suspect]
     Indication: CHRONIC HEPATITIS C
     Dosage: 1.5 ?G/KG, QW
     Route: 058
     Dates: start: 20120611, end: 20120820
  10. PEGINTRON [Suspect]
     Dosage: 1.2 ?G/KG, QW
     Route: 058
     Dates: start: 20120827, end: 20120918
  11. PEGINTRON [Suspect]
     Dosage: 1.5 ?G/KG, QW
     Route: 058
     Dates: start: 20120924, end: 20121119

REACTIONS (3)
  - Neutrophil count decreased [Recovered/Resolved]
  - Neutrophil count decreased [Recovered/Resolved]
  - White blood cell count decreased [Not Recovered/Not Resolved]
